FAERS Safety Report 15239287 (Version 2)
Quarter: 2018Q3

REPORT INFORMATION
  Report Type: Spontaneous
  Country: SE (occurrence: SE)
  Receive Date: 20180803
  Receipt Date: 20180902
  Transmission Date: 20181010
  Serious: Yes (Disabling)
  Sender: FDA-Public Use
  Company Number: PHHY2018SE062231

PATIENT
  Age: 77 Year
  Sex: Male

DRUGS (8)
  1. DOCETAXEL. [Suspect]
     Active Substance: DOCETAXEL
     Dosage: UNK
     Route: 065
  2. ENZALUTAMIDE [Suspect]
     Active Substance: ENZALUTAMIDE
     Indication: PROSTATE CANCER METASTATIC
     Dosage: UNK, UNKNOWN FREQ.
     Route: 065
     Dates: start: 20151208, end: 20170424
  3. PREDNISOLONE. [Suspect]
     Active Substance: PREDNISOLONE
     Indication: PROSTATE CANCER METASTATIC
     Dosage: UNK
     Route: 065
  4. MADOPARK [Suspect]
     Active Substance: BENSERAZIDE HYDROCHLORIDE\LEVODOPA
     Dosage: UNK (MODIFIED?RELEASE CAPSULE, HARD)
     Route: 065
  5. PREDNISOLONE. [Suspect]
     Active Substance: PREDNISOLONE
     Dosage: UNK
     Route: 065
  6. MADOPARK [Suspect]
     Active Substance: BENSERAZIDE HYDROCHLORIDE\LEVODOPA
     Indication: PARKINSON^S DISEASE
     Dosage: UNK (MODIFIED?RELEASE CAPSULE, HARD)
     Route: 065
  7. DOCETAXEL. [Suspect]
     Active Substance: DOCETAXEL
     Indication: PROSTATE CANCER METASTATIC
     Dosage: UNK
     Route: 065
  8. MADOPARK [Suspect]
     Active Substance: BENSERAZIDE HYDROCHLORIDE\LEVODOPA
     Dosage: UNK (MODIFIED?RELEASE CAPSULE, HARD)
     Route: 065

REACTIONS (1)
  - Vertigo [Recovered/Resolved with Sequelae]

NARRATIVE: CASE EVENT DATE: 20180325
